FAERS Safety Report 10810163 (Version 1)
Quarter: 2015Q1

REPORT INFORMATION
  Report Type: Spontaneous
  Country: US (occurrence: None)
  Receive Date: 20150213
  Receipt Date: 20150213
  Transmission Date: 20150721
  Serious: Yes (Life-Threatening, Hospitalization, Disabling, Other)
  Sender: FDA-Public Use
  Company Number: None

PATIENT
  Age: 81 Year
  Sex: Male

DRUGS (2)
  1. PROLIA [Suspect]
     Active Substance: DENOSUMAB
     Indication: ARTHRALGIA
     Dates: start: 20140819
  2. PROLIA [Suspect]
     Active Substance: DENOSUMAB
     Dates: start: 20140819

REACTIONS (25)
  - Musculoskeletal pain [None]
  - Dyspnoea [None]
  - Thrombosis [None]
  - Back pain [None]
  - Myalgia [None]
  - General physical health deterioration [None]
  - Rhinorrhoea [None]
  - Abasia [None]
  - Cardiac disorder [None]
  - Asthenia [None]
  - Balance disorder [None]
  - Fall [None]
  - Neck pain [None]
  - Arthralgia [None]
  - Musculoskeletal stiffness [None]
  - Influenza like illness [None]
  - Pelvic fracture [None]
  - Blister [None]
  - Blood calcium decreased [None]
  - Weight decreased [None]
  - Pulmonary thrombosis [None]
  - Myocardial infarction [None]
  - Walking aid user [None]
  - Cellulitis [None]
  - Confusional state [None]

NARRATIVE: CASE EVENT DATE: 20140819
